FAERS Safety Report 19792718 (Version 1)
Quarter: 2021Q3

REPORT INFORMATION
  Report Type: Spontaneous
  Country: US (occurrence: US)
  Receive Date: 20210906
  Receipt Date: 20210906
  Transmission Date: 20211014
  Serious: Yes (Other)
  Sender: FDA-Public Use
  Company Number: US-GLAXOSMITHKLINE-US2021GSK189212

PATIENT
  Sex: Male

DRUGS (4)
  1. ZANTAC [Suspect]
     Active Substance: RANITIDINE HYDROCHLORIDE
     Indication: DYSPEPSIA
     Dosage: USED BOTH 75 MG DOSE AND 150 MG DOSE|OVER THE COUNTER
     Dates: start: 199601, end: 201910
  2. ZANTAC [Suspect]
     Active Substance: RANITIDINE HYDROCHLORIDE
     Indication: DYSPEPSIA
     Dosage: USED BOTH 75 MG DOSE AND 150 MG DOSE|OVER THE COUNTER
     Dates: start: 199601, end: 201910
  3. RANITIDINE. [Suspect]
     Active Substance: RANITIDINE
     Indication: DYSPEPSIA
     Dosage: USED BOTH 75 MG DOSE AND 150 MG DOSE|OVER THE COUNTER
     Dates: start: 199601, end: 201910
  4. RANITIDINE. [Suspect]
     Active Substance: RANITIDINE
     Indication: DYSPEPSIA
     Dosage: USED BOTH 75 MG DOSE AND 150 MG DOSE|OVER THE COUNTER
     Dates: start: 199601, end: 201910

REACTIONS (1)
  - Prostate cancer [Unknown]
